FAERS Safety Report 11575325 (Version 1)
Quarter: 2015Q3

REPORT INFORMATION
  Report Type: Spontaneous
  Country: US (occurrence: None)
  Receive Date: 20150929
  Receipt Date: 20150929
  Transmission Date: 20151125
  Serious: Yes (Disabling)
  Sender: FDA-Public Use
  Company Number: None

PATIENT
  Age: 62 Year
  Sex: Male
  Weight: 127.01 kg

DRUGS (12)
  1. METOPROLOL [Concomitant]
     Active Substance: METOPROLOL
  2. POTASSIUM [Concomitant]
     Active Substance: POTASSIUM
  3. VITAMIN B12 [Concomitant]
     Active Substance: CYANOCOBALAMIN
  4. LASIX [Concomitant]
     Active Substance: FUROSEMIDE
  5. LEVOTHYROXIN [Concomitant]
     Active Substance: LEVOTHYROXINE
  6. ASPIRIN. [Concomitant]
     Active Substance: ASPIRIN
  7. HUMALOG [Concomitant]
     Active Substance: INSULIN LISPRO
  8. ALLOPURINOL. [Concomitant]
     Active Substance: ALLOPURINOL
  9. IRON [Concomitant]
     Active Substance: IRON
  10. PRALUENT [Suspect]
     Active Substance: ALIROCUMAB
     Indication: LOW DENSITY LIPOPROTEIN INCREASED
     Dosage: 1 SHOT 75 MG?SAMPLE INJECTION ?GIVEN INTO /UNDER THE SKIN
     Route: 042
     Dates: start: 20150922
  11. WARFARIN [Concomitant]
     Active Substance: WARFARIN
  12. LEVEMIR [Concomitant]
     Active Substance: INSULIN DETEMIR

REACTIONS (8)
  - Chills [None]
  - Dizziness [None]
  - Decreased appetite [None]
  - Night sweats [None]
  - Dyspnoea [None]
  - Influenza like illness [None]
  - Chest pain [None]
  - Pyrexia [None]

NARRATIVE: CASE EVENT DATE: 20150925
